FAERS Safety Report 23728318 (Version 1)
Quarter: 2024Q2

REPORT INFORMATION
  Report Type: Spontaneous
  Country: US (occurrence: US)
  Receive Date: 20240410
  Receipt Date: 20240410
  Transmission Date: 20240716
  Serious: Yes (Other)
  Sender: FDA-Public Use
  Company Number: US-PFIZER INC-202400080719

PATIENT
  Age: 77 Year
  Sex: Female

DRUGS (2)
  1. IBRANCE [Suspect]
     Active Substance: PALBOCICLIB
     Indication: Breast cancer metastatic
     Dosage: DAILY FOR 21 DAYS ON, 7DAYS OFF
     Route: 048
     Dates: start: 20240219
  2. FASLODEX [Concomitant]
     Active Substance: FULVESTRANT

REACTIONS (8)
  - Red blood cell count decreased [Not Recovered/Not Resolved]
  - Increased appetite [Not Recovered/Not Resolved]
  - Asthenia [Not Recovered/Not Resolved]
  - Fatigue [Not Recovered/Not Resolved]
  - Hunger [Not Recovered/Not Resolved]
  - Feeling jittery [Not Recovered/Not Resolved]
  - Malaise [Not Recovered/Not Resolved]
  - Nausea [Unknown]

NARRATIVE: CASE EVENT DATE: 20240101
